FAERS Safety Report 7609390-X (Version None)
Quarter: 2011Q3

REPORT INFORMATION
  Report Type: 
  Country: None (occurrence: None)
  Receive Date: 20110714
  Receipt Date: 20110706
  Transmission Date: 20111222
  Serious: Yes (Hospitalization)
  Sender: FDA-Public Use
  Company Number: CM-GILEAD-2011-0041404

PATIENT
  Age: 48 Year
  Sex: Female
  Weight: 58 kg

DRUGS (4)
  1. EMTRICITABINE AND TENOFOVIR DISOPROXIL FUMARATE [Suspect]
     Indication: HIV INFECTION
     Dates: start: 20110108
  2. RITONAVIR [Concomitant]
     Indication: HIV INFECTION
     Dates: start: 20100327
  3. LOPINAVIR [Concomitant]
     Indication: HIV INFECTION
     Dates: start: 20100327
  4. COTRIM [Concomitant]
     Indication: OPPORTUNISTIC INFECTION
     Dates: start: 20051202

REACTIONS (1)
  - GASTROENTERITIS [None]
